FAERS Safety Report 5999927-9 (Version None)
Quarter: 2008Q4

REPORT INFORMATION
  Report Type: 
  Country: None (occurrence: None)
  Receive Date: 20081215
  Receipt Date: 20081205
  Transmission Date: 20090506
  Serious: Yes (Other)
  Sender: FDA-Public Use
  Company Number: PHHY2008BR31054

PATIENT
  Age: 71 Year
  Sex: Female

DRUGS (3)
  1. EXFORGE [Suspect]
     Dosage: 320/5 MG
     Route: 048
     Dates: start: 20080301
  2. SELOZOK [Concomitant]
     Dosage: UNK
  3. ADALAT [Concomitant]
     Dosage: UNK

REACTIONS (2)
  - PRURITUS [None]
  - WOUND [None]
